FAERS Safety Report 7650321-4 (Version None)
Quarter: 2011Q3

REPORT INFORMATION
  Report Type: 
  Country: None (occurrence: None)
  Receive Date: 20110802
  Receipt Date: 20110722
  Transmission Date: 20111222
  Serious: Yes (Hospitalization, Other)
  Sender: FDA-Public Use
  Company Number: US-AMGEN-USASP2011034863

PATIENT
  Age: 40 Year
  Sex: Male

DRUGS (3)
  1. ENBREL [Suspect]
     Indication: REITER'S SYNDROME
  2. ANTIBIOTICS [Suspect]
  3. ENBREL [Suspect]
     Indication: ANKYLOSING SPONDYLITIS
     Dosage: 50 MG, QWK
     Dates: start: 20021205, end: 20110702

REACTIONS (6)
  - TENDON RUPTURE [None]
  - JOINT EFFUSION [None]
  - SECRETION DISCHARGE [None]
  - JOINT SWELLING [None]
  - BLOODY DISCHARGE [None]
  - OSTEOARTHRITIS [None]
